FAERS Safety Report 12179467 (Version 2)
Quarter: 2016Q2

REPORT INFORMATION
  Report Type: Spontaneous
  Country: FR (occurrence: FR)
  Receive Date: 20160314
  Receipt Date: 20160406
  Transmission Date: 20160815
  Serious: Yes (Hospitalization, Other)
  Sender: FDA-Public Use
  Company Number: FR-NORTHSTAR HEALTHCARE HOLDINGS-FR-2016NSR001375

PATIENT

DRUGS (8)
  1. PAROXETINE. [Concomitant]
     Active Substance: PAROXETINE
     Indication: PRODUCT USED FOR UNKNOWN INDICATION
     Dosage: 20 MG, QAM
  2. HYDROXYZINE HYDROCHLORIDE. [Suspect]
     Active Substance: HYDROXYZINE HYDROCHLORIDE
     Dosage: 25 MG, QPM
  3. ARIPIPRAZOLE. [Suspect]
     Active Substance: ARIPIPRAZOLE
     Dosage: 30 MG, QD
  4. HYDROXYZINE HYDROCHLORIDE. [Suspect]
     Active Substance: HYDROXYZINE HYDROCHLORIDE
     Indication: PRODUCT USED FOR UNKNOWN INDICATION
     Dosage: 1.5 G, UNK
  5. OXAZEPAM. [Concomitant]
     Active Substance: OXAZEPAM
     Indication: PRODUCT USED FOR UNKNOWN INDICATION
     Dosage: 10 MG, PRN
  6. DIAZEPAM. [Suspect]
     Active Substance: DIAZEPAM
     Indication: PRODUCT USED FOR UNKNOWN INDICATION
     Dosage: A BLISTER PACK, UNK
  7. ARIPIPRAZOLE. [Suspect]
     Active Substance: ARIPIPRAZOLE
     Indication: PRODUCT USED FOR UNKNOWN INDICATION
     Dosage: 15 MG, QAM
  8. CANNABIS [Suspect]
     Active Substance: CANNABIS SATIVA SUBSP. INDICA TOP
     Indication: PRODUCT USED FOR UNKNOWN INDICATION
     Dosage: SEVERAL BUTTS, UNK

REACTIONS (27)
  - Hypoxic-ischaemic encephalopathy [Recovered/Resolved with Sequelae]
  - Cerebrovascular disorder [Recovering/Resolving]
  - Loss of consciousness [Recovered/Resolved]
  - Hypokinesia [Recovering/Resolving]
  - Hypoglycaemia [Recovering/Resolving]
  - Hypertonia [Recovering/Resolving]
  - Muscle rigidity [Recovering/Resolving]
  - Apraxia [Recovering/Resolving]
  - Dysarthria [Recovering/Resolving]
  - Agnosia [Recovering/Resolving]
  - Resting tremor [Recovering/Resolving]
  - Mutism [Recovered/Resolved]
  - Negativism [Recovering/Resolving]
  - Language disorder [Recovering/Resolving]
  - Dysgraphia [Recovering/Resolving]
  - Apathy [Recovering/Resolving]
  - Locked-in syndrome [Recovering/Resolving]
  - Extrapyramidal disorder [Recovering/Resolving]
  - Parkinsonian gait [Recovering/Resolving]
  - Mental fatigue [Recovering/Resolving]
  - Coma [Recovered/Resolved]
  - Somnolence [Recovering/Resolving]
  - Musculoskeletal stiffness [Recovering/Resolving]
  - Intentional overdose [Recovering/Resolving]
  - Anterograde amnesia [Recovering/Resolving]
  - Presyncope [Recovering/Resolving]
  - Aphasia [Recovering/Resolving]
